FAERS Safety Report 8188543-9 (Version None)
Quarter: 2012Q1

REPORT INFORMATION
  Report Type: 
  Country: None (occurrence: None)
  Receive Date: 20120306
  Receipt Date: 20120302
  Transmission Date: 20120608
  Serious: Yes (Hospitalization, Other)
  Sender: FDA-Public Use
  Company Number: PHHY2012TR007216

PATIENT
  Sex: Male
  Weight: 17 kg

DRUGS (3)
  1. LANSOR [Concomitant]
     Dosage: 30 MG, UNK
  2. EXJADE [Suspect]
     Indication: APLASTIC ANAEMIA
     Dosage: 500 MG, UNK
     Route: 048
  3. KEPPRA [Concomitant]
     Dosage: 500 MG, UNK

REACTIONS (4)
  - HAEMORRHAGE INTRACRANIAL [None]
  - DYSPHAGIA [None]
  - DYSPNOEA [None]
  - SPINAL CORD COMPRESSION [None]
